FAERS Safety Report 21093531 (Version 5)
Quarter: 2022Q3

REPORT INFORMATION
  Report Type: Report from Study
  Country: CA (occurrence: CA)
  Receive Date: 20220718
  Receipt Date: 20220831
  Transmission Date: 20221027
  Serious: Yes (Hospitalization, Other)
  Sender: FDA-Public Use
  Company Number: CA-BRISTOL-MYERS SQUIBB COMPANY-2022-042306

PATIENT
  Age: 68 Year
  Sex: Male
  Weight: 91 kg

DRUGS (8)
  1. OPDIVO [Suspect]
     Active Substance: NIVOLUMAB
     Indication: Pleural mesothelioma
     Dosage: EXPIRATION DATE: 30-APR-2024, 31-JAN-2024, ACD3324
     Route: 042
     Dates: start: 20220429
  2. OPDIVO [Suspect]
     Active Substance: NIVOLUMAB
     Dosage: 31-AUG-2024 AND 31-JAN-2024
     Route: 042
  3. OPDIVO [Suspect]
     Active Substance: NIVOLUMAB
     Route: 042
  4. YERVOY [Suspect]
     Active Substance: IPILIMUMAB
     Indication: Pleural mesothelioma
     Dosage: EXPIRY DATE: 31-MAY-2024
     Route: 042
     Dates: start: 20220429
  5. ROSUVASTATIN [Concomitant]
     Active Substance: ROSUVASTATIN
     Indication: Product used for unknown indication
     Route: 065
  6. PERINDOPRIL ARGININE [Concomitant]
     Active Substance: PERINDOPRIL ARGININE
     Indication: Product used for unknown indication
     Route: 065
  7. DAPAGLIFLOZIN [Concomitant]
     Active Substance: DAPAGLIFLOZIN
     Indication: Product used for unknown indication
     Route: 065
  8. CLOPAN [CLONAZEPAM] [Concomitant]
     Indication: Product used for unknown indication
     Route: 065

REACTIONS (14)
  - Pyrexia [Unknown]
  - Dyspnoea [Not Recovered/Not Resolved]
  - Infection [Unknown]
  - Abdominal mass [Recovering/Resolving]
  - Rash pruritic [Unknown]
  - Cough [Unknown]
  - Weight increased [Unknown]
  - Weight decreased [Unknown]
  - Insomnia [Unknown]
  - Fear [Unknown]
  - Anxiety [Not Recovered/Not Resolved]
  - Prescribed overdose [Unknown]
  - Oedema peripheral [Recovering/Resolving]
  - Fatigue [Not Recovered/Not Resolved]

NARRATIVE: CASE EVENT DATE: 20220510
